FAERS Safety Report 11046136 (Version 3)
Quarter: 2015Q2

REPORT INFORMATION
  Report Type: Spontaneous
  Country: US (occurrence: US)
  Receive Date: 20150418
  Receipt Date: 20150605
  Transmission Date: 20150821
  Serious: No
  Sender: FDA-Public Use
  Company Number: US-JNJFOC-20150402325

PATIENT
  Sex: Female
  Weight: 50.98 kg

DRUGS (12)
  1. PROPULSID [Suspect]
     Active Substance: CISAPRIDE
     Indication: GASTROINTESTINAL HYPOMOTILITY
     Route: 048
     Dates: start: 20150223
  2. CLONIDINE. [Concomitant]
     Active Substance: CLONIDINE
     Indication: DROOLING
     Dosage: 0.005 AM, 0.1 MG HS
     Route: 065
     Dates: start: 2010
  3. SIMETHICONE [Concomitant]
     Active Substance: DIMETHICONE\SILICON DIOXIDE\SIMETHICONE
     Indication: IMPAIRED GASTRIC EMPTYING
     Route: 065
  4. SIMETHICONE [Concomitant]
     Active Substance: DIMETHICONE\SILICON DIOXIDE\SIMETHICONE
     Indication: GASTROOESOPHAGEAL REFLUX DISEASE
     Route: 065
  5. LANSOPRAZOLE. [Concomitant]
     Active Substance: LANSOPRAZOLE
     Indication: GASTROOESOPHAGEAL REFLUX DISEASE
     Route: 065
     Dates: start: 2012
  6. PEG [Concomitant]
     Active Substance: POLYETHYLENE GLYCOLS
     Route: 065
  7. PROPULSID [Suspect]
     Active Substance: CISAPRIDE
     Indication: GASTROINTESTINAL HYPOMOTILITY
     Route: 048
     Dates: end: 20150210
  8. VALACYCLOVIR [Concomitant]
     Active Substance: VALACYCLOVIR HYDROCHLORIDE
     Indication: HEPATIC INFECTION
     Route: 065
     Dates: start: 2009
  9. MILK OF MAGNESIA [Concomitant]
     Active Substance: MAGNESIUM HYDROXIDE
     Route: 065
  10. ALPRAZOLAM. [Concomitant]
     Active Substance: ALPRAZOLAM
     Indication: GENERALISED ANXIETY DISORDER
     Route: 065
     Dates: start: 2010
  11. FERROUS SULFATE [Concomitant]
     Active Substance: FERROUS SULFATE\FERROUS SULFATE, DRIED
     Route: 065
  12. NUVARING [Concomitant]
     Active Substance: ETHINYL ESTRADIOL\ETONOGESTREL
     Indication: BLOOD OESTROGEN
     Route: 065
     Dates: start: 2010

REACTIONS (1)
  - Adverse event [Recovered/Resolved]
